FAERS Safety Report 9772019 (Version 3)
Quarter: 2015Q3

REPORT INFORMATION
  Report Type: Report from Study
  Country: US (occurrence: US)
  Receive Date: 20131219
  Receipt Date: 20150813
  Transmission Date: 20151125
  Serious: No
  Sender: FDA-Public Use
  Company Number: US-TEVA-403430USA

PATIENT
  Sex: Female
  Weight: 50.39 kg

DRUGS (12)
  1. SYMBICORT [Concomitant]
     Active Substance: BUDESONIDE\FORMOTEROL FUMARATE DIHYDRATE
     Dosage: 160-4.5
  2. CARISOPRODOL. [Concomitant]
     Active Substance: CARISOPRODOL
  3. METHYLPREDNISOLON [Concomitant]
     Active Substance: METHYLPREDNISOLONE
  4. MULTIVITAMIN [Concomitant]
     Active Substance: VITAMINS
  5. CENESTIN [Concomitant]
     Active Substance: ESTROGENS, CONJUGATED SYNTHETIC A
  6. IBUPROFEN. [Concomitant]
     Active Substance: IBUPROFEN
  7. COPAXONE [Suspect]
     Active Substance: GLATIRAMER ACETATE
     Indication: MULTIPLE SCLEROSIS
     Dates: start: 2009
  8. TRAZODONE [Concomitant]
     Active Substance: TRAZODONE HYDROCHLORIDE
  9. MIRTAZAPINE. [Concomitant]
     Active Substance: MIRTAZAPINE
  10. DANTROLENE [Concomitant]
     Active Substance: DANTROLENE
  11. AMPYRA [Suspect]
     Active Substance: DALFAMPRIDINE
     Indication: GAIT DISTURBANCE
     Dosage: 20 MILLIGRAM DAILY;
     Route: 048
     Dates: start: 2011
  12. PROVENTIL [Concomitant]
     Active Substance: ALBUTEROL
     Route: 055

REACTIONS (5)
  - Heart rate irregular [Recovered/Resolved]
  - Constipation [Not Recovered/Not Resolved]
  - Palpitations [Recovered/Resolved]
  - Injection site mass [Unknown]
  - Abdominal pain [Unknown]
